FAERS Safety Report 20421210 (Version 1)
Quarter: 2022Q1

REPORT INFORMATION
  Report Type: Spontaneous
  Country: IR (occurrence: IR)
  Receive Date: 20220203
  Receipt Date: 20220203
  Transmission Date: 20220423
  Serious: Yes (Death, Other)
  Sender: FDA-Public Use
  Company Number: IR-PFIZER INC-202200136463

PATIENT
  Age: 50 Year
  Sex: Male

DRUGS (2)
  1. CYTARABINE [Suspect]
     Active Substance: CYTARABINE
     Indication: Leukaemia
     Dosage: 100 MG/M2
  2. IDARUBICIN HYDROCHLORIDE [Suspect]
     Active Substance: IDARUBICIN HYDROCHLORIDE
     Indication: Leukaemia
     Dosage: 100 MG/M2

REACTIONS (2)
  - Multiple organ dysfunction syndrome [Fatal]
  - Acute hepatic failure [Fatal]
